FAERS Safety Report 15455714 (Version 2)
Quarter: 2018Q4

REPORT INFORMATION
  Report Type: Spontaneous
  Country: CL (occurrence: CL)
  Receive Date: 20181002
  Receipt Date: 20181011
  Transmission Date: 20190204
  Serious: Yes (Life-Threatening, Other)
  Sender: FDA-Public Use
  Company Number: CL-PFIZER INC-2018350334

PATIENT
  Age: 18 Year
  Sex: Female

DRUGS (11)
  1. CYTARABINE. [Suspect]
     Active Substance: CYTARABINE
     Dosage: 50 MG, CYCLIC (ON DAYS 1, 8, 15 AND 22)
  2. METHOTREXATE. [Suspect]
     Active Substance: METHOTREXATE
     Indication: ACUTE LYMPHOCYTIC LEUKAEMIA
     Dosage: 15 MG, CYCLIC (ON DAYS 1, 8, 15 AND 22.)
     Route: 037
  3. BETAMETHASONE. [Suspect]
     Active Substance: BETAMETHASONE
     Indication: ACUTE LYMPHOCYTIC LEUKAEMIA
     Dosage: 4 MG, CYCLIC (ON DAYS 1, 8, 15 AND 22)
     Route: 037
  4. CYCLOPHOSPHAMIDE. [Concomitant]
     Active Substance: CYCLOPHOSPHAMIDE
     Indication: ACUTE LYMPHOCYTIC LEUKAEMIA
     Dosage: 1000 MG/M2, DAILY (DAYS 1 AND 29)
     Route: 042
  5. CYTARABINE. [Concomitant]
     Active Substance: CYTARABINE
     Indication: ACUTE LYMPHOCYTIC LEUKAEMIA
     Dosage: 75 MG/M2, DAILY (FOR 4 DAYS EACH TIME, DAYS 1-4, 8-11, 29-32, 36-39)
     Route: 042
  6. METHOTREXATE. [Suspect]
     Active Substance: METHOTREXATE
     Dosage: 15 MG, CYCLIC (BI-WEEKLY (TRIPLE COMBINATION CHEMOTHERAPY ALONG WITH RESCUE THERAPY (REGIMEN R1))
     Route: 037
  7. BETAMETHASONE. [Suspect]
     Active Substance: BETAMETHASONE
     Dosage: 4 MG, CYCLIC (BI-WEEKLY (TRIPLE COMBINATION CHEMOTHERAPY ALONG WITH RESCUE THERAPY (REGIMEN R1) )
     Route: 037
  8. VINCRISTINE [Concomitant]
     Active Substance: VINCRISTINE
     Indication: ACUTE LYMPHOCYTIC LEUKAEMIA
     Dosage: 1.5 MG/M2/DAY, (MAX. DOSE 2 MG), DAYS 15, 22, 43 AND 50
     Route: 042
  9. ASPARAGINASE [Concomitant]
     Active Substance: ASPARAGINASE
     Indication: ACUTE LYMPHOCYTIC LEUKAEMIA
     Dosage: UNK, CYCLIC (6000 U/M2, DAYS 15, 17, 19 AND 43, 45, 47)
     Route: 030
  10. MERCAPTOPURINE. [Concomitant]
     Active Substance: MERCAPTOPURINE
     Indication: ACUTE LYMPHOCYTIC LEUKAEMIA
     Dosage: 60 MG/M2, DAILY (ON DAYS 1-14 AND 29-42)
     Route: 048
  11. CYTARABINE. [Suspect]
     Active Substance: CYTARABINE
     Indication: ACUTE LYMPHOCYTIC LEUKAEMIA
     Dosage: 50 MG, CYCLIC (BI-WEEKLY (TRIPLE COMBINATION CHEMOTHERAPY ALONG WITH RESCUE THERAPY (REGIMEN R1))
     Route: 037

REACTIONS (13)
  - Hypoaesthesia [Unknown]
  - Headache [Unknown]
  - Blindness [Unknown]
  - Papilloedema [Unknown]
  - Muscular weakness [Unknown]
  - Dyspnoea [Unknown]
  - Pain in extremity [Unknown]
  - Respiratory failure [Unknown]
  - Myelopathy [Unknown]
  - Dysphagia [Unknown]
  - Urinary incontinence [Unknown]
  - Paraesthesia [Unknown]
  - Quadriplegia [Unknown]
